FAERS Safety Report 6744491-X (Version None)
Quarter: 2010Q2

REPORT INFORMATION
  Report Type: 
  Country: None (occurrence: None)
  Receive Date: 20100527
  Receipt Date: 20100520
  Transmission Date: 20101027
  Serious: Yes (Other)
  Sender: FDA-Public Use
  Company Number: AU-PFIZER INC-2010055067

PATIENT
  Age: 37 Year
  Sex: Male
  Weight: 116.6 kg

DRUGS (4)
  1. VARENICLINE TARTRATE [Suspect]
     Dosage: 1 MG, 2X/DAY
     Dates: start: 20100212, end: 20100416
  2. VARENICLINE TARTRATE [Suspect]
     Dosage: 1 MG, 1X/DAY
     Dates: start: 20100416, end: 20100425
  3. ATACAND [Concomitant]
     Indication: BLOOD PRESSURE
     Dosage: 16 MG, 1X/DAY MANE
     Route: 048
  4. ZOCOR [Concomitant]
     Indication: BLOOD CHOLESTEROL
     Dosage: UNK
     Route: 048

REACTIONS (1)
  - BLOOD PRESSURE INCREASED [None]
